FAERS Safety Report 5845100-4 (Version None)
Quarter: 2008Q3

REPORT INFORMATION
  Report Type: 
  Country: None (occurrence: None)
  Receive Date: 20080813
  Receipt Date: 20080813
  Transmission Date: 20090109
  Serious: Yes (Hospitalization)
  Sender: FDA-Public Use
  Company Number: None

PATIENT
  Sex: Female
  Weight: 71.6683 kg

DRUGS (8)
  1. METOCLOPRAMIDE [Suspect]
     Indication: GASTROOESOPHAGEAL REFLUX DISEASE
     Dosage: 10 MG QID PO
     Route: 048
     Dates: start: 20080619, end: 20080805
  2. CITALOPRAM HYDROBROMIDE [Concomitant]
  3. PROTONIX [Concomitant]
  4. RANITIDINE [Concomitant]
  5. LOVASTATIN [Concomitant]
  6. ADVAIR DISKUS 100/50 [Concomitant]
  7. HYDROCHLOROTHIAZINE [Concomitant]
  8. ASPIRIN [Concomitant]

REACTIONS (7)
  - ANXIETY [None]
  - BRUXISM [None]
  - DEPRESSION [None]
  - JAW DISORDER [None]
  - MENTAL DISORDER [None]
  - NO THERAPEUTIC RESPONSE [None]
  - SUICIDAL IDEATION [None]
